FAERS Safety Report 6915807-6 (Version None)
Quarter: 2010Q3

REPORT INFORMATION
  Report Type: 
  Country: None (occurrence: None)
  Receive Date: 20100810
  Receipt Date: 20100414
  Transmission Date: 20110219
  Serious: No
  Sender: FDA-Public Use
  Company Number: A0855024A

PATIENT
  Age: 69 Year
  Sex: Female

DRUGS (2)
  1. PAXIL [Suspect]
     Indication: MIGRAINE
     Dosage: 20MG PER DAY
     Route: 048
     Dates: start: 20100303
  2. IMITREX TABLETS [Concomitant]

REACTIONS (1)
  - NAUSEA [None]
